FAERS Safety Report 6996632-7 (Version None)
Quarter: 2010Q3

REPORT INFORMATION
  Report Type: 
  Country: None (occurrence: None)
  Receive Date: 20100918
  Receipt Date: 20090514
  Transmission Date: 20110219
  Serious: No
  Sender: FDA-Public Use
  Company Number: US-WYE-H09357609

PATIENT
  Sex: Female
  Weight: 65.83 kg

DRUGS (2)
  1. PREMPRO [Suspect]
     Indication: HORMONE THERAPY
     Dosage: 0.45MG-1.5MG; UNSPECIFIED FREQUENCY
     Route: 048
     Dates: start: 20090301
  2. SUDAFED 12 HOUR [Concomitant]

REACTIONS (2)
  - DRUG INEFFECTIVE [None]
  - INAPPROPRIATE SCHEDULE OF DRUG ADMINISTRATION [None]
